FAERS Safety Report 23421800 (Version 4)
Quarter: 2024Q1

REPORT INFORMATION
  Report Type: Spontaneous
  Country: US (occurrence: US)
  Receive Date: 20240119
  Receipt Date: 20240327
  Transmission Date: 20240410
  Serious: Yes (Hospitalization)
  Sender: FDA-Public Use
  Company Number: US-PFIZER INC-202400016110

PATIENT
  Age: 65 Year
  Sex: Female
  Weight: 48.98 kg

DRUGS (1)
  1. PAXLOVID [Suspect]
     Active Substance: NIRMATRELVIR\RITONAVIR
     Indication: COVID-19 treatment
     Dosage: [NIRMATRELVIR 300 MG]/[RITONAVIR 100 MG]; 2X/DAY
     Dates: start: 20240113, end: 20240116

REACTIONS (8)
  - Insomnia [Recovered/Resolved]
  - Agitation [Recovered/Resolved]
  - Dysgeusia [Recovered/Resolved]
  - Myalgia [Recovered/Resolved]
  - Restless legs syndrome [Unknown]
  - Restless arm syndrome [Unknown]
  - Gastrointestinal disorder [Unknown]
  - Pain [Recovered/Resolved]

NARRATIVE: CASE EVENT DATE: 20240113
